FAERS Safety Report 18613858 (Version 1)
Quarter: 2020Q4

REPORT INFORMATION
  Report Type: Spontaneous
  Country: US (occurrence: US)
  Receive Date: 20201214
  Receipt Date: 20201214
  Transmission Date: 20210114
  Serious: No
  Sender: FDA-Public Use
  Company Number: US-ABBVIE-20K-163-3647229-00

PATIENT
  Sex: Male

DRUGS (1)
  1. IMBRUVICA [Suspect]
     Active Substance: IBRUTINIB
     Indication: PRODUCT USED FOR UNKNOWN INDICATION
     Route: 048
     Dates: start: 20201028

REACTIONS (4)
  - Retching [Unknown]
  - Dysgeusia [Unknown]
  - Parosmia [Unknown]
  - Regurgitation [Unknown]

NARRATIVE: CASE EVENT DATE: 2020
